FAERS Safety Report 5480435-9 (Version None)
Quarter: 2007Q4

REPORT INFORMATION
  Report Type: 
  Country: None (occurrence: None)
  Receive Date: 20071009
  Receipt Date: 20071001
  Transmission Date: 20080405
  Serious: Yes (Hospitalization)
  Sender: FDA-Public Use
  Company Number: A0685442A

PATIENT
  Age: 86 Year
  Sex: Male
  Weight: 77.5 kg

DRUGS (2)
  1. ROSIGLITAZONE [Suspect]
     Dosage: 8MG PER DAY
     Route: 048
     Dates: start: 20070517
  2. ARICEPT [Concomitant]
     Dosage: 5MG PER DAY
     Route: 048
     Dates: start: 20060925

REACTIONS (2)
  - CEREBROVASCULAR ACCIDENT [None]
  - MUSCULAR WEAKNESS [None]
